FAERS Safety Report 6470436-6 (Version None)
Quarter: 2009Q4

REPORT INFORMATION
  Report Type: 
  Country: None (occurrence: None)
  Receive Date: 20091202
  Receipt Date: 20091202
  Transmission Date: 20100525
  Serious: Yes (Hospitalization)
  Sender: FDA-Public Use
  Company Number: None

PATIENT
  Age: 74 Year
  Sex: Female
  Weight: 113 kg

DRUGS (9)
  1. MS CONTIN [Suspect]
     Indication: PAIN IN EXTREMITY
     Dosage: 15 MG TWICE DAILY ORAL
     Route: 048
     Dates: start: 20090604
  2. FLOXASTOR [Concomitant]
  3. ATENOLOL [Concomitant]
  4. BUMETONIDE [Concomitant]
  5. PRAMIPEXOLE DIHYDROCHLORIDE [Concomitant]
  6. FUROSEMIDE [Concomitant]
  7. GABAPATIN [Concomitant]
  8. ALLOPURINOL [Concomitant]
  9. OXYCODONE HCL AND ACETAMINOPHEN [Concomitant]

REACTIONS (2)
  - DEPRESSED LEVEL OF CONSCIOUSNESS [None]
  - RESPIRATORY FAILURE [None]
